FAERS Safety Report 5959909-X (Version None)
Quarter: 2008Q4

REPORT INFORMATION
  Report Type: 
  Country: None (occurrence: None)
  Receive Date: 20081119
  Receipt Date: 20081119
  Transmission Date: 20090506
  Serious: Yes (Hospitalization)
  Sender: FDA-Public Use
  Company Number: None

PATIENT
  Age: 64 Year
  Sex: Male
  Weight: 75.1 kg

DRUGS (10)
  1. OXALIPLATIN [Suspect]
     Indication: OESOPHAGEAL CARCINOMA
     Dosage: 50MG/M2
     Route: 042
     Dates: start: 20080708
  2. OXALIPLATIN [Suspect]
     Indication: OESOPHAGEAL CARCINOMA
     Dosage: 50MG/M2
     Route: 042
     Dates: start: 20080715
  3. METFORMIN HCL [Concomitant]
  4. METOPROLOL SUCCINATE [Concomitant]
  5. AMLODIPINE [Concomitant]
  6. BENZAPRIL [Concomitant]
  7. PIOGLITAZONE [Concomitant]
  8. ZOLPIDEM [Concomitant]
  9. ASPIRIN [Concomitant]
  10. COLESEVALAM [Concomitant]

REACTIONS (8)
  - BACTERAEMIA [None]
  - BLOOD PRESSURE DIASTOLIC DECREASED [None]
  - CHILLS [None]
  - FLUSHING [None]
  - HYPOTENSION [None]
  - NAUSEA [None]
  - TACHYCARDIA [None]
  - VOMITING [None]
